FAERS Safety Report 25274208 (Version 4)
Quarter: 2025Q3

REPORT INFORMATION
  Report Type: Report from Study
  Country: US (occurrence: US)
  Receive Date: 20250506
  Receipt Date: 20250801
  Transmission Date: 20251020
  Serious: Yes (Hospitalization, Other)
  Sender: PFIZER
  Company Number: US-PFIZER INC-202500007179

PATIENT
  Age: 80 Year
  Sex: Male

DRUGS (5)
  1. VYNDAMAX [Suspect]
     Active Substance: TAFAMIDIS
     Indication: Amyloidosis
     Dosage: TAKE 1 CAPSULE DAILY
     Route: 048
     Dates: start: 20250107, end: 202503
  2. VYNDAMAX [Suspect]
     Active Substance: TAFAMIDIS
     Dosage: TAKE ONE 61MG CAPSULE DAILY
     Route: 048
  3. VYNDAMAX [Suspect]
     Active Substance: TAFAMIDIS
     Dosage: TAKE ONE 61MG CAPSULE ONCE DAILY
     Route: 048
  4. VYNDAMAX [Suspect]
     Active Substance: TAFAMIDIS
  5. FUROSEMIDE [Concomitant]
     Active Substance: FUROSEMIDE

REACTIONS (20)
  - Hypotension [Recovered/Resolved]
  - Asthenia [Unknown]
  - Pneumonia [Unknown]
  - Oxygen saturation decreased [Unknown]
  - Dizziness [Unknown]
  - Rash [Not Recovered/Not Resolved]
  - Fatigue [Unknown]
  - Dyspnoea [Unknown]
  - Hyperkeratosis [Unknown]
  - Peripheral swelling [Unknown]
  - Ulcer [Unknown]
  - Swelling [Unknown]
  - Headache [Unknown]
  - Skin exfoliation [Unknown]
  - Fluid retention [Unknown]
  - Depressed mood [Unknown]
  - Skin lesion [Not Recovered/Not Resolved]
  - Blister [Unknown]
  - Musculoskeletal discomfort [Unknown]
  - Depression [Unknown]

NARRATIVE: CASE EVENT DATE: 20250301
